FAERS Safety Report 10663815 (Version 1)
Quarter: 2014Q4

REPORT INFORMATION
  Report Type: Spontaneous
  Country: US (occurrence: US)
  Receive Date: 20141219
  Receipt Date: 20141219
  Transmission Date: 20150529
  Serious: No
  Sender: FDA-Public Use
  Company Number: US-TEVA-465848USA

PATIENT
  Sex: Male

DRUGS (2)
  1. SEIZURE MEDICATION [Concomitant]
     Active Substance: UNSPECIFIED INGREDIENT
  2. NAPROXEN. [Suspect]
     Active Substance: NAPROXEN
     Indication: ARTHRITIS
     Dosage: 1000 MILLIGRAM DAILY;

REACTIONS (2)
  - Burning sensation [Unknown]
  - Abdominal discomfort [Unknown]
